FAERS Safety Report 16661978 (Version 2)
Quarter: 2020Q1

REPORT INFORMATION
  Report Type: Report from Study
  Country: US (occurrence: US)
  Receive Date: 20190802
  Receipt Date: 20200129
  Transmission Date: 20200409
  Serious: No
  Sender: FDA-Public Use
  Company Number: US-EXELIXIS-CABO-19018387

PATIENT
  Age: 18 Year
  Sex: Male

DRUGS (2)
  1. CABOMETYX [Suspect]
     Active Substance: CABOZANTINIB S-MALATE
     Indication: BONE CANCER
     Dosage: 60 MG, QD
     Dates: start: 20190106
  2. CABOMETYX [Suspect]
     Active Substance: CABOZANTINIB S-MALATE
     Indication: CHONDROSARCOMA

REACTIONS (7)
  - Ear pain [Recovered/Resolved]
  - Alopecia [Not Recovered/Not Resolved]
  - Decreased appetite [Not Recovered/Not Resolved]
  - Off label use [Unknown]
  - Nausea [Not Recovered/Not Resolved]
  - Stomatitis [Recovering/Resolving]
  - Fatigue [Not Recovered/Not Resolved]

NARRATIVE: CASE EVENT DATE: 201901
